FAERS Safety Report 17981330 (Version 1)
Quarter: 2020Q3

REPORT INFORMATION
  Report Type: Spontaneous
  Country: DK (occurrence: DK)
  Receive Date: 20200705
  Receipt Date: 20200705
  Transmission Date: 20201103
  Serious: Yes (Hospitalization)
  Sender: FDA-Public Use
  Company Number: DK-ASTRAZENECA-2020SE83364

PATIENT
  Age: 50 Year
  Sex: Male

DRUGS (1)
  1. FORXIGA [Suspect]
     Active Substance: DAPAGLIFLOZIN
     Indication: TYPE 2 DIABETES MELLITUS
     Dosage: STRENCY 5 MG. DAILY
     Route: 048
     Dates: start: 20200603, end: 20200619

REACTIONS (2)
  - Blood creatinine abnormal [Unknown]
  - Renal impairment [Unknown]
